FAERS Safety Report 6649902-6 (Version None)
Quarter: 2010Q1

REPORT INFORMATION
  Report Type: 
  Country: None (occurrence: None)
  Receive Date: 20100325
  Receipt Date: 20100316
  Transmission Date: 20100710
  Serious: No
  Sender: FDA-Public Use
  Company Number: US-BIOGENIDEC-2010BI009259

PATIENT
  Sex: Female

DRUGS (2)
  1. TYSABRI [Suspect]
     Indication: MULTIPLE SCLEROSIS
     Route: 042
     Dates: start: 20050110, end: 20050201
  2. TYSABRI [Suspect]
     Route: 042
     Dates: start: 20061114

REACTIONS (4)
  - ARTHROPATHY [None]
  - JOINT INJURY [None]
  - MENORRHAGIA [None]
  - PROCEDURAL PAIN [None]
